FAERS Safety Report 17246650 (Version 1)
Quarter: 2020Q1

REPORT INFORMATION
  Report Type: Spontaneous
  Country: US (occurrence: US)
  Receive Date: 20200108
  Receipt Date: 20200108
  Transmission Date: 20200409
  Serious: No
  Sender: FDA-Public Use
  Company Number: US-PFIZER INC-2020003626

PATIENT
  Age: 40 Year
  Sex: Female

DRUGS (2)
  1. ADVIL [Suspect]
     Active Substance: IBUPROFEN
     Dosage: WITH ADVIL PM FOR A TOTAL OF 600MG OF IBUPROFEN
  2. ADVIL PM [Suspect]
     Active Substance: DIPHENHYDRAMINE CITRATE\IBUPROFEN
     Dosage: 2 DF, UNK (400MG OF IBUPROFEN AND 76MG OF DIPHENHYDRAMINE)

REACTIONS (2)
  - Discomfort [Unknown]
  - Somnolence [Unknown]
